FAERS Safety Report 8471693-7 (Version None)
Quarter: 2012Q2

REPORT INFORMATION
  Report Type: 
  Country: None (occurrence: None)
  Receive Date: 20120627
  Receipt Date: 20120620
  Transmission Date: 20120825
  Serious: Yes (Other)
  Sender: FDA-Public Use
  Company Number: CA-GLAXOSMITHKLINE-A0981875A

PATIENT
  Sex: Female

DRUGS (19)
  1. ATIVAN [Concomitant]
     Route: 065
  2. PERCOCET [Concomitant]
     Route: 065
  3. IMODIUM [Concomitant]
     Route: 065
  4. VITAMIN D [Concomitant]
     Route: 065
  5. CALCIUM [Concomitant]
     Route: 065
  6. XELODA [Concomitant]
     Route: 065
  7. TYKERB [Suspect]
     Indication: BREAST CANCER METASTATIC
     Dosage: 1250MG PER DAY
     Route: 048
     Dates: start: 20110201
  8. ESCITALOPRAM [Concomitant]
     Dosage: 20MG PER DAY
     Route: 065
  9. METOPROLOL TARTRATE [Concomitant]
     Dosage: 25MG TWICE PER DAY
     Route: 065
  10. NEXIUM [Concomitant]
     Dosage: 40MG PER DAY
     Route: 065
  11. RAMIPRIL [Concomitant]
     Dosage: 5MG PER DAY
     Route: 065
  12. DIGOXIN [Concomitant]
     Dosage: .125MG PER DAY
     Route: 065
  13. DILANTIN [Concomitant]
     Dosage: 75MG TWICE PER DAY
     Route: 065
  14. ZOPICLONE [Concomitant]
     Dosage: 7.5MG AT NIGHT
     Route: 065
  15. VITAMIN B-12 [Concomitant]
     Route: 065
  16. CLOBAZAM [Concomitant]
     Dosage: 10MG AT NIGHT
     Route: 065
  17. DEXAMETHASONE [Concomitant]
     Dosage: 4MG TWICE PER DAY
     Route: 065
  18. METHOTREXATE [Concomitant]
     Route: 065
  19. XGEVA [Concomitant]
     Route: 065

REACTIONS (3)
  - BLINDNESS [None]
  - BONE NEOPLASM MALIGNANT [None]
  - OPHTHALMOPLEGIA [None]
